FAERS Safety Report 11930725 (Version 1)
Quarter: 2016Q1

REPORT INFORMATION
  Report Type: Spontaneous
  Country: US (occurrence: US)
  Receive Date: 20160120
  Receipt Date: 20160120
  Transmission Date: 20160526
  Serious: No
  Sender: FDA-Public Use
  Company Number: US-INCYTE CORPORATION-2015IN003939

PATIENT
  Sex: Male
  Weight: 81 kg

DRUGS (21)
  1. XANAX [Concomitant]
     Active Substance: ALPRAZOLAM
  2. FLOMAX [Concomitant]
     Active Substance: TAMSULOSIN HYDROCHLORIDE
  3. FINASTERIDE. [Concomitant]
     Active Substance: FINASTERIDE
  4. SIMVASTATIN. [Concomitant]
     Active Substance: SIMVASTATIN
  5. JAKAFI [Suspect]
     Active Substance: RUXOLITINIB
     Indication: MYELOFIBROSIS
     Dosage: 10 MG, BID
     Route: 048
     Dates: start: 20150416
  6. CLOTRIMAZOLE. [Concomitant]
     Active Substance: CLOTRIMAZOLE
  7. TRAMADOL. [Concomitant]
     Active Substance: TRAMADOL
  8. ZOLPIDEM [Concomitant]
     Active Substance: ZOLPIDEM\ZOLPIDEM TARTRATE
  9. KLONOPIN [Concomitant]
     Active Substance: CLONAZEPAM
  10. OXYCODONE [Concomitant]
     Active Substance: OXYCODONE
  11. CIPRO [Concomitant]
     Active Substance: CIPROFLOXACIN HYDROCHLORIDE
  12. FLONASE [Concomitant]
     Active Substance: FLUTICASONE PROPIONATE
  13. FERROUS SULFATE [Concomitant]
     Active Substance: FERROUS SULFATE\FERROUS SULFATE, DRIED
  14. MIRALAX [Concomitant]
     Active Substance: POLYETHYLENE GLYCOL 3350
  15. PEPCID [Concomitant]
     Active Substance: FAMOTIDINE
  16. COLACE [Concomitant]
     Active Substance: DOCUSATE SODIUM
  17. MILK OF MAGNESIA [Concomitant]
     Active Substance: MAGNESIUM HYDROXIDE
  18. ASPIRIN. [Concomitant]
     Active Substance: ASPIRIN
  19. MEGACE [Concomitant]
     Active Substance: MEGESTROL ACETATE
  20. PANTOPRAZOLE [Concomitant]
     Active Substance: PANTOPRAZOLE SODIUM
  21. VITAMIN D                          /00107901/ [Concomitant]
     Active Substance: ERGOCALCIFEROL

REACTIONS (2)
  - Wrong technique in product usage process [Unknown]
  - Product commingling [Unknown]

NARRATIVE: CASE EVENT DATE: 2015
